FAERS Safety Report 8770875 (Version 1)
Quarter: 2020Q3

REPORT INFORMATION
  Report Type: Report from Study
  Country: US (occurrence: US)
  Receive Date: 20120906
  Receipt Date: 20120906
  Transmission Date: 20201104
  Serious: Yes (Hospitalization)
  Sender: FDA-Public Use
  Company Number: US-CELGENEUS-163-21880-12083096

PATIENT
  Age: 69 Year
  Sex: Female
  Weight: 63.5 kg

DRUGS (4)
  1. REVLIMID [Suspect]
     Active Substance: LENALIDOMIDE
     Dosage: 15 MILLIGRAM
     Route: 048
     Dates: start: 20120727, end: 20120824
  2. CEDIRANIB. [Suspect]
     Active Substance: CEDIRANIB
     Dosage: 30 MILLIGRAM
     Route: 048
     Dates: start: 20120727, end: 20120824
  3. REVLIMID [Suspect]
     Active Substance: LENALIDOMIDE
     Indication: PAPILLARY THYROID CANCER
     Dosage: 15 MILLIGRAM
     Route: 048
     Dates: start: 20120113
  4. CEDIRANIB. [Suspect]
     Active Substance: CEDIRANIB
     Indication: PAPILLARY THYROID CANCER
     Dosage: 30 MILLIGRAM
     Route: 048
     Dates: start: 20120113

REACTIONS (2)
  - Delirium [Recovering/Resolving]
  - Diarrhoea [Recovering/Resolving]

NARRATIVE: CASE EVENT DATE: 20120826
